FAERS Safety Report 17184745 (Version 1)
Quarter: 2019Q4

REPORT INFORMATION
  Report Type: Spontaneous
  Country: US (occurrence: US)
  Receive Date: 20191127
  Receipt Date: 20191127
  Transmission Date: 20200122
  Serious: Yes (Hospitalization)
  Sender: FDA-Public Use
  Company Number: None

PATIENT
  Sex: Female
  Weight: 11.64 kg

DRUGS (10)
  1. VINCRISTINE [Suspect]
     Active Substance: VINCRISTINE
  2. GENTAMYCIN [Concomitant]
     Active Substance: GENTAMICIN
  3. CYTARABINE. [Suspect]
     Active Substance: CYTARABINE
  4. DEXAMETHASONE. [Suspect]
     Active Substance: DEXAMETHASONE
  5. METHOTREXATE. [Suspect]
     Active Substance: METHOTREXATE
  6. VANCOMYCIN [Concomitant]
     Active Substance: VANCOMYCIN
  7. HYDROCORTISONE. [Suspect]
     Active Substance: HYDROCORTISONE
  8. PEG-L-ASPARAGINASE [Suspect]
     Active Substance: PEGASPARGASE
  9. PREDNISONE. [Suspect]
     Active Substance: PREDNISONE
  10. DAUNORUBICIN [Suspect]
     Active Substance: DAUNORUBICIN

REACTIONS (14)
  - Haematemesis [None]
  - Acute kidney injury [None]
  - Catheter site haemorrhage [None]
  - Leukopenia [None]
  - Sepsis [None]
  - Ulcer haemorrhage [None]
  - Blood urea increased [None]
  - Blood creatinine increased [None]
  - Hyperglycaemia [None]
  - Mouth haemorrhage [None]
  - Petechiae [None]
  - Lipase increased [None]
  - Anal ulcer [None]
  - Neutropenia [None]

NARRATIVE: CASE EVENT DATE: 20191029
